FAERS Safety Report 7962014 (Version 2)
Quarter: 2013Q1

REPORT INFORMATION
  Report Type: Spontaneous
  Country: VE (occurrence: VE)
  Receive Date: 20110526
  Receipt Date: 20130304
  Transmission Date: 20140127
  Serious: Yes (Death)
  Sender: FDA-Public Use
  Company Number: PHHY2011VE44542

PATIENT
  Age: 76 Year
  Sex: Female

DRUGS (3)
  1. DIOVAN [Suspect]
     Indication: HYPERTENSION
     Dosage: 160 MG, QD (DAILY IN THE MORNING)
     Route: 048
     Dates: end: 200912
  2. ANTIHYPERTENSIVE DRUGS [Concomitant]
  3. GLUCOFAGE [Concomitant]
     Indication: DIABETES MELLITUS
     Dosage: 500 MG, DAILY
     Route: 048
     Dates: end: 200912

REACTIONS (2)
  - Respiratory arrest [Fatal]
  - Cough [Unknown]
